FAERS Safety Report 6401400-0 (Version None)
Quarter: 2009Q4

REPORT INFORMATION
  Report Type: 
  Country: None (occurrence: None)
  Receive Date: 20091015
  Receipt Date: 20071008
  Transmission Date: 20100525
  Serious: Yes (Disabling)
  Sender: FDA-Public Use
  Company Number: US-ASTRAZENECA-2006UW07883

PATIENT
  Sex: Female
  Weight: 137 kg

DRUGS (16)
  1. SEROQUEL [Suspect]
     Dosage: 25-600 MG ( FLUCTUATING)
     Route: 048
     Dates: start: 20020706
  2. AMBIEN [Concomitant]
     Indication: SLEEP DISORDER
     Route: 048
     Dates: start: 20020627
  3. GEODON [Concomitant]
     Route: 048
     Dates: start: 20020920
  4. DETROL LA [Concomitant]
     Route: 048
     Dates: start: 20020923
  5. BUTALBITAL [Concomitant]
     Route: 048
     Dates: start: 20020927
  6. DIAZEPAM [Concomitant]
     Route: 048
     Dates: start: 20021104
  7. NEXIUM [Concomitant]
     Route: 048
     Dates: start: 20021111
  8. CEPHALEXIN [Concomitant]
     Route: 048
     Dates: start: 20021113
  9. LEXAPRO [Concomitant]
     Dosage: 10-20 MG
     Route: 048
     Dates: start: 20030109
  10. DICLOFENAC SODIUM [Concomitant]
     Route: 048
     Dates: start: 20030124
  11. IBUPROFEN [Concomitant]
     Route: 048
     Dates: start: 20030331
  12. PROTONIX [Concomitant]
     Route: 048
     Dates: start: 20040417
  13. PAXIL [Concomitant]
     Route: 048
     Dates: start: 20040417
  14. TRAZODONE [Concomitant]
     Route: 048
     Dates: start: 20040417
  15. ESTROGEN [Concomitant]
     Route: 048
     Dates: start: 20040417
  16. ADVAIR DISKUS 100/50 [Concomitant]
     Dosage: 50/500 ONE INHALANTION TWO TIES A DAY
     Dates: start: 20040417

REACTIONS (1)
  - ILL-DEFINED DISORDER [None]
